FAERS Safety Report 21228315 (Version 2)
Quarter: 2022Q3

REPORT INFORMATION
  Report Type: Spontaneous
  Country: JP (occurrence: JP)
  Receive Date: 20220818
  Receipt Date: 20220916
  Transmission Date: 20221027
  Serious: Yes (Other)
  Sender: FDA-Public Use
  Company Number: JP-BAUSCH-BL-2022-020330

PATIENT
  Age: 79 Year
  Sex: Male

DRUGS (1)
  1. BRODALUMAB [Suspect]
     Active Substance: BRODALUMAB
     Indication: Psoriasis
     Dosage: THE ADMINISTRATION INTERVAL OF LUMICEF WAS ADJUSTED FROM ONCE EVERY 2WEEKS TO ONCE EVERY 4 WEEKS
     Route: 058
     Dates: start: 2018, end: 202208

REACTIONS (1)
  - Myelodysplastic syndrome [Not Recovered/Not Resolved]
